FAERS Safety Report 18092700 (Version 1)
Quarter: 2020Q3

REPORT INFORMATION
  Report Type: Spontaneous
  Country: US (occurrence: US)
  Receive Date: 20200730
  Receipt Date: 20200730
  Transmission Date: 20201103
  Serious: Yes (Other)
  Sender: FDA-Public Use
  Company Number: US-MYLANLABS-2020M1067990

PATIENT
  Age: 12 Day
  Sex: Male

DRUGS (6)
  1. TISSUE PLASMINOGEN ACTIVATOR, RECOMBINATIVE [Suspect]
     Active Substance: ALTEPLASE
     Dosage: 0.3 MILLIGRAM/KILOGRAM, QH FOR 6 HOURS
  2. HEPARIN [Suspect]
     Active Substance: HEPARIN SODIUM
     Indication: AORTIC THROMBOSIS
     Dosage: 10 UNITS/KG/HOUR (INITIALLY)
     Route: 065
  3. HEPARIN [Suspect]
     Active Substance: HEPARIN SODIUM
     Dosage: INCREASED TO A MAXIMUM OF 33.6 UNITS/KG/HOUR
     Route: 065
  4. TISSUE PLASMINOGEN ACTIVATOR, RECOMBINATIVE [Suspect]
     Active Substance: ALTEPLASE
     Indication: AORTIC THROMBOSIS
     Dosage: 0.3 MILLIGRAM/KILOGRAM, QH FOR 6 HOURS, THEN OFF FOR 11 HOURS
  5. TISSUE PLASMINOGEN ACTIVATOR, RECOMBINATIVE [Suspect]
     Active Substance: ALTEPLASE
     Dosage: 0.2 MILLIGRAM/KILOGRAM, QH FOR 17 HOURS, THEN OFF FOR 3 HOURS
  6. TISSUE PLASMINOGEN ACTIVATOR, RECOMBINATIVE [Suspect]
     Active Substance: ALTEPLASE
     Dosage: 0.1 MILLIGRAM/KILOGRAM, QH FOR 2 HOURS

REACTIONS (4)
  - Intraventricular haemorrhage neonatal [Unknown]
  - Pulmonary haemorrhage [Unknown]
  - Cerebrovascular disorder [Unknown]
  - Intraventricular haemorrhage [Unknown]
